FAERS Safety Report 9928422 (Version 1)
Quarter: 2014Q1

REPORT INFORMATION
  Report Type: Spontaneous
  Country: US (occurrence: US)
  Receive Date: 20140227
  Receipt Date: 20140227
  Transmission Date: 20141002
  Serious: No
  Sender: FDA-Public Use
  Company Number: US-PFIZER INC-2014055113

PATIENT
  Sex: Male

DRUGS (4)
  1. XELJANZ [Suspect]
     Dosage: 5 MG, 2X/DAY
     Dates: start: 2014
  2. PREDNISONE [Suspect]
     Dosage: UNK
  3. PREDNISONE [Suspect]
     Dosage: 5 MG, DAILY
  4. PREDNISONE [Suspect]
     Dosage: UNK

REACTIONS (1)
  - Dyspepsia [Recovering/Resolving]
